FAERS Safety Report 9706473 (Version 1)
Quarter: 2013Q4

REPORT INFORMATION
  Report Type: Spontaneous
  Country: GB (occurrence: GB)
  Receive Date: 20131125
  Receipt Date: 20131125
  Transmission Date: 20140711
  Serious: Yes (Other)
  Sender: FDA-Public Use
  Company Number: GB-ROCHE-1308430

PATIENT
  Age: 52 Year
  Sex: Female
  Weight: 96 kg

DRUGS (10)
  1. XOLAIR [Suspect]
     Indication: ASTHMA
     Route: 058
     Dates: start: 20130930
  2. OMEPRAZOLE [Concomitant]
  3. UNIPHYLLIN [Concomitant]
  4. SYMBICORT [Concomitant]
  5. BRICANYL [Concomitant]
  6. AVAMYS [Concomitant]
  7. TRANEXAMIC ACID [Concomitant]
  8. FOLIC ACID [Concomitant]
  9. NORETHINDRONE ACETATE [Concomitant]
  10. FERROUS SULPHATE [Concomitant]

REACTIONS (6)
  - Paraesthesia [Recovered/Resolved]
  - Pharyngeal oedema [Recovered/Resolved]
  - Abdominal pain upper [Recovered/Resolved]
  - Influenza like illness [Recovered/Resolved]
  - Hypersensitivity [Recovered/Resolved]
  - Pruritus [Recovered/Resolved]
